FAERS Safety Report 11365833 (Version 1)
Quarter: 2015Q3

REPORT INFORMATION
  Report Type: Spontaneous
  Country: IT (occurrence: IT)
  Receive Date: 20150811
  Receipt Date: 20150811
  Transmission Date: 20151125
  Serious: Yes (Hospitalization, Other)
  Sender: FDA-Public Use
  Company Number: IT-UCBSA-2015024884

PATIENT
  Age: 55 Year
  Sex: Male
  Weight: 85 kg

DRUGS (5)
  1. NEUPRO [Suspect]
     Active Substance: ROTIGOTINE
     Indication: PARKINSON^S DISEASE
     Dosage: 10 MG, ONCE DAILY (QD), STRENGTH: 2MG/ 24 HOURS
     Dates: start: 20110101, end: 20150701
  2. DUODOPA [Suspect]
     Active Substance: CARBIDOPA\LEVODOPA
     Indication: PARKINSON^S DISEASE
     Dosage: 56 ML, ONCE DAILY (QD); STRENGTH: 20MG/ML + 5MG/ML
     Dates: start: 20110101, end: 20150702
  3. FOLIN [Suspect]
     Active Substance: FOLIC ACID
     Indication: AXONAL NEUROPATHY
     Dosage: 5 MG, ONCE DAILY (QD)
     Route: 048
     Dates: start: 20110501
  4. CLOZAPINE. [Suspect]
     Active Substance: CLOZAPINE
     Indication: SLEEP DISORDER
     Dosage: 25 MG, ONCE DAILY (QD)
     Route: 048
     Dates: start: 20120301, end: 20150601
  5. DOBETIN [Suspect]
     Active Substance: CYANOCOBALAMIN
     Indication: AXONAL NEUROPATHY
     Dosage: 1 DF, WEEKLY (QW); STRENGTH: 5000 MCG/2 ML
     Route: 030
     Dates: start: 20110501

REACTIONS (3)
  - Axonal neuropathy [Unknown]
  - Acute kidney injury [Unknown]
  - Anaemia [Unknown]

NARRATIVE: CASE EVENT DATE: 20150601
